FAERS Safety Report 4696855-6 (Version None)
Quarter: 2005Q2

REPORT INFORMATION
  Report Type: 
  Country: None (occurrence: None)
  Receive Date: 20050620
  Receipt Date: 20050608
  Transmission Date: 20051028
  Serious: Yes (Other)
  Sender: FDA-Public Use
  Company Number: 2005085345

PATIENT
  Age: 38 Year
  Sex: Female

DRUGS (2)
  1. NICOTINE [Suspect]
     Dosage: TRANSDERMAL
     Route: 062
  2. NICORETTE [Suspect]
     Dosage: ONE PACKET QD, SUBLINGUAL
     Route: 060

REACTIONS (7)
  - BLOOD PRESSURE INCREASED [None]
  - DISTURBANCE IN ATTENTION [None]
  - FEELING ABNORMAL [None]
  - HALLUCINATION [None]
  - INAPPROPRIATE AFFECT [None]
  - NICOTINE DEPENDENCE [None]
  - TOBACCO WITHDRAWAL SYMPTOMS [None]
